FAERS Safety Report 23925235 (Version 1)
Quarter: 2024Q2

REPORT INFORMATION
  Report Type: Spontaneous
  Country: US (occurrence: US)
  Receive Date: 20240531
  Receipt Date: 20240531
  Transmission Date: 20240715
  Serious: No
  Sender: FDA-Public Use
  Company Number: US-HALEON-2178420

PATIENT

DRUGS (1)
  1. PARODONTAX ACTIVE GUM REPAIR [Suspect]
     Active Substance: STANNOUS FLUORIDE
     Indication: Product used for unknown indication

REACTIONS (2)
  - Gingival pain [Unknown]
  - Gingival discomfort [Unknown]
